FAERS Safety Report 5940484-0 (Version None)
Quarter: 2008Q4

REPORT INFORMATION
  Report Type: 
  Country: None (occurrence: None)
  Receive Date: 20081030
  Receipt Date: 20081022
  Transmission Date: 20090506
  Serious: Yes (Life-Threatening, Hospitalization)
  Sender: FDA-Public Use
  Company Number: OMPQ-NO-0810S-0942

PATIENT
  Age: 72 Year
  Sex: Female

DRUGS (1)
  1. OMNIPAQUE 140 [Suspect]
     Indication: INTRACRANIAL ANEURYSM
     Dosage: 200 ML, SINGLE DOSE, I.V.
     Route: 042
     Dates: start: 20081016, end: 20081016

REACTIONS (3)
  - BRAIN OEDEMA [None]
  - COMA [None]
  - HEMIPLEGIA [None]
